FAERS Safety Report 8005695-1 (Version None)
Quarter: 2011Q4

REPORT INFORMATION
  Report Type: 
  Country: None (occurrence: None)
  Receive Date: 20111223
  Receipt Date: 20111212
  Transmission Date: 20120403
  Serious: Yes (Hospitalization, Other)
  Sender: FDA-Public Use
  Company Number: BR-SANOFI-AVENTIS-2011SA081495

PATIENT
  Age: 61 Year
  Sex: Female
  Weight: 64 kg

DRUGS (10)
  1. LUFTAL [Concomitant]
     Indication: GASTROINTESTINAL DISORDER
     Dosage: STRENGTH: 30 MG
     Route: 048
     Dates: start: 20090101
  2. LANTUS [Suspect]
     Indication: TYPE 2 DIABETES MELLITUS
     Dosage: START DATE:5 YEARS AGO
     Route: 058
     Dates: start: 20060101
  3. LANTUS [Suspect]
     Indication: DEVICE THERAPY
     Dates: start: 20060101
  4. ALL OTHER THERAPEUTIC PRODUCTS [Concomitant]
     Indication: PANIC DISORDER
     Dosage: STRENGTH: 10 MG
     Route: 048
     Dates: start: 20110601
  5. DIAMICRON [Concomitant]
     Indication: TYPE 2 DIABETES MELLITUS
     Dosage: STRENGTH: 30 MG
     Route: 048
  6. JANUMET [Concomitant]
     Indication: TYPE 2 DIABETES MELLITUS
     Dosage: STRENGTH: 50 MG
     Route: 048
     Dates: start: 20110401
  7. LEXOTAN [Concomitant]
     Indication: DEPRESSION
     Dosage: STRENGTH: 3 MG
     Route: 048
     Dates: start: 20100101
  8. GALVUS MET [Concomitant]
     Indication: TYPE 2 DIABETES MELLITUS
     Dosage: STRENGTH: 850 MG
     Route: 048
  9. SIMVASTATIN [Concomitant]
     Dosage: STRENGTH: 10 MG
     Route: 048
     Dates: start: 20100101
  10. ACARBOSE [Concomitant]
     Indication: TYPE 2 DIABETES MELLITUS
     Dosage: STRENGTH: 100 MG
     Route: 048

REACTIONS (1)
  - EYE HAEMORRHAGE [None]
